FAERS Safety Report 7285178-7 (Version None)
Quarter: 2011Q1

REPORT INFORMATION
  Report Type: 
  Country: None (occurrence: None)
  Receive Date: 20110210
  Receipt Date: 20110207
  Transmission Date: 20110831
  Serious: Yes (Hospitalization, Other)
  Sender: FDA-Public Use
  Company Number: US-AMGEN-QUU432920

PATIENT
  Age: 70 Year
  Sex: Male
  Weight: 121.6 kg

DRUGS (9)
  1. WARFARIN SODIUM [Concomitant]
  2. ALLOPURINOL [Concomitant]
  3. NPLATE [Suspect]
     Dates: start: 20090827, end: 20100506
  4. METFORMIN [Concomitant]
  5. METOPROLOL [Concomitant]
  6. ASPIRIN [Concomitant]
  7. DIGOXIN [Concomitant]
  8. NPLATE [Suspect]
     Indication: IDIOPATHIC THROMBOCYTOPENIC PURPURA
     Dosage: 4 A?G/KG, UNK
     Route: 058
     Dates: start: 20090827, end: 20100506
  9. CALCIUM [Concomitant]

REACTIONS (6)
  - ISCHAEMIC CARDIOMYOPATHY [None]
  - MITRAL VALVE INCOMPETENCE [None]
  - CORONARY ARTERY DISEASE [None]
  - ANAEMIA [None]
  - DYSPNOEA [None]
  - DRUG INEFFECTIVE [None]
